FAERS Safety Report 5095528-8 (Version None)
Quarter: 2006Q3

REPORT INFORMATION
  Report Type: 
  Country: None (occurrence: None)
  Receive Date: 20060901
  Receipt Date: 20060821
  Transmission Date: 20061208
  Serious: Yes (Hospitalization)
  Sender: FDA-Public Use
  Company Number: DE-ABBOTT-06P-062-0341403-00

PATIENT
  Age: 48 Year
  Sex: Male

DRUGS (5)
  1. KALETRA [Suspect]
     Indication: HIV INFECTION
     Route: 048
  2. CARBAMAZEPINE [Interacting]
     Indication: CONVULSION PROPHYLAXIS
     Route: 048
     Dates: start: 20060515, end: 20060518
  3. TRUVADA [Concomitant]
     Indication: HIV INFECTION
     Route: 048
  4. METHADONE HYDROCHLORIDE [Concomitant]
     Indication: DRUG WITHDRAWAL MAINTENANCE THERAPY
     Route: 048
  5. DIAZEPAM [Concomitant]
     Indication: DRUG DEPENDENCE
     Route: 048
     Dates: start: 20060516, end: 20060518

REACTIONS (7)
  - ASTHENIA [None]
  - COORDINATION ABNORMAL [None]
  - DIZZINESS [None]
  - DRUG INTERACTION [None]
  - DRUG LEVEL INCREASED [None]
  - GENERAL PHYSICAL HEALTH DETERIORATION [None]
  - NYSTAGMUS [None]
